FAERS Safety Report 4945375-X (Version None)
Quarter: 2006Q1

REPORT INFORMATION
  Report Type: 
  Country: None (occurrence: None)
  Receive Date: 20060315
  Receipt Date: 20060315
  Transmission Date: 20060701
  Serious: Yes (Death, Hospitalization)
  Sender: FDA-Public Use
  Company Number: None

PATIENT
  Sex: Male
  Weight: 103.6 kg

DRUGS (1)
  1. PREDNISONE TAB [Suspect]
     Indication: DIFFUSE LARGE B-CELL LYMPHOMA
     Dosage: 100 MG
     Dates: start: 20060208, end: 20060212

REACTIONS (3)
  - GASTROINTESTINAL HAEMORRHAGE [None]
  - POST PROCEDURAL COMPLICATION [None]
  - SYNCOPE [None]
